FAERS Safety Report 7250775-1 (Version None)
Quarter: 2011Q1

REPORT INFORMATION
  Report Type: 
  Country: None (occurrence: None)
  Receive Date: 20110119
  Receipt Date: 20110110
  Transmission Date: 20110831
  Serious: Yes (Hospitalization)
  Sender: FDA-Public Use
  Company Number: US-1184650

PATIENT
  Age: 89 Year
  Sex: Female
  Weight: 72.5755 kg

DRUGS (12)
  1. LEVOTHYROXINE [Concomitant]
  2. DONEEZIL HYDROCHLORIDE [Concomitant]
  3. HYDROCHLOROTHIAZIDE [Concomitant]
  4. LISINOPRIL [Concomitant]
  5. TRAZODONE HCL [Concomitant]
  6. TIMOLOL MALEATE [Suspect]
     Indication: GLAUCOMA
     Dosage: 1 GTT QD OU OPHTHALMIC, 1 GTT BID OU OPHTHALMIC
     Route: 047
  7. PRAVASTATIN [Concomitant]
  8. BRIMONIDINE TARTRATE [Suspect]
     Dosage: 1 GTT QD OPHTHALMIC, 1 GTT BID OPHTHALMIC
     Route: 047
  9. XALATAN [Suspect]
     Dosage: 1 GTT BID OPHTHALMIC, 1 GGT QD OPHTHALMIC
     Route: 047
  10. ALLOPURINOL [Concomitant]
  11. AMLODIPINE [Concomitant]
  12. CARVEDILOL [Concomitant]

REACTIONS (1)
  - CEREBROVASCULAR ACCIDENT [None]
